FAERS Safety Report 18140433 (Version 1)
Quarter: 2020Q3

REPORT INFORMATION
  Report Type: Report from Study
  Country: US (occurrence: US)
  Receive Date: 20200812
  Receipt Date: 20200812
  Transmission Date: 20201103
  Serious: Yes (Hospitalization)
  Sender: FDA-Public Use
  Company Number: US-MYLANLABS-2020M1071034

PATIENT
  Age: 4 Year
  Sex: Male
  Weight: 17.2 kg

DRUGS (2)
  1. METHOTREXATE. [Suspect]
     Active Substance: METHOTREXATE
     Indication: B PRECURSOR TYPE ACUTE LEUKAEMIA
     Dosage: 12MG DOSE OF METHOTREXATE WAS TAKEN..
     Route: 037
     Dates: start: 201901
  2. NORMAL SALINE [Concomitant]
     Active Substance: SODIUM CHLORIDE
     Indication: VEHICLE SOLUTION USE
     Dosage: 6 MILLILITER 12MG DOSE OF METHOTREXATE WAS TAKEN FROM ...
     Route: 037
     Dates: start: 201901

REACTIONS (3)
  - Wrong product stored [Unknown]
  - Wrong product administered [Unknown]
  - Product use complaint [Unknown]

NARRATIVE: CASE EVENT DATE: 201901
